FAERS Safety Report 6141886-2 (Version None)
Quarter: 2009Q1

REPORT INFORMATION
  Report Type: 
  Country: None (occurrence: None)
  Receive Date: 20090331
  Receipt Date: 20090316
  Transmission Date: 20090719
  Serious: Yes (Death)
  Sender: FDA-Public Use
  Company Number: 2009184148

PATIENT
  Weight: 126 kg

DRUGS (1)
  1. FRAGMIN [Suspect]
     Dosage: 18000 IU, 1X/DAY

REACTIONS (1)
  - DEATH [None]
